FAERS Safety Report 24828166 (Version 2)
Quarter: 2025Q1

REPORT INFORMATION
  Report Type: Spontaneous
  Country: PE (occurrence: PE)
  Receive Date: 20250109
  Receipt Date: 20250303
  Transmission Date: 20250409
  Serious: Yes (Other)
  Sender: AMGEN
  Company Number: PE-PFIZER INC-PV202500001883

PATIENT
  Age: 42 Year
  Sex: Female

DRUGS (1)
  1. ENBREL [Suspect]
     Active Substance: ETANERCEPT
     Indication: Spondylitis
     Route: 058

REACTIONS (5)
  - Gallbladder operation [Unknown]
  - Haematemesis [Unknown]
  - Abdominal pain upper [Unknown]
  - Gastritis [Unknown]
  - Cytology abnormal [Unknown]

NARRATIVE: CASE EVENT DATE: 20241101
